FAERS Safety Report 8198325-X (Version None)
Quarter: 2012Q1

REPORT INFORMATION
  Report Type: 
  Country: None (occurrence: None)
  Receive Date: 20120309
  Receipt Date: 20120229
  Transmission Date: 20120608
  Serious: Yes (Hospitalization, Other)
  Sender: FDA-Public Use
  Company Number: PHHY2010DE82515

PATIENT
  Sex: Female
  Weight: 60 kg

DRUGS (10)
  1. AROMASIN [Concomitant]
     Dates: start: 20070215
  2. NAVELBINE [Concomitant]
     Dosage: 90 MG, DAILY, 4 CYCLES QW3
     Route: 048
     Dates: start: 20100617, end: 20110106
  3. POLYETHYLENE GLYCOL [Concomitant]
     Indication: CONSTIPATION
     Dates: start: 20101027
  4. METOPROLOL SUCCINATE [Concomitant]
     Dosage: 47.5 MG, UNK
     Route: 048
  5. DEXAMETHASONE SODIUM PHOSPHATE [Concomitant]
     Indication: OEDEMA
     Dates: start: 20101027, end: 20101101
  6. VITAMIN D [Concomitant]
     Dosage: 880IE/DAY
  7. PANTOPRAZOLE [Concomitant]
     Dosage: 40 MG, UNK
     Route: 048
  8. OXYCODONE HYDROCHLORIDE [Concomitant]
     Indication: PAIN
     Dosage: 20 MG, DAILY
     Route: 048
  9. CALCIUM [Concomitant]
     Dosage: 1000 MG, DAIKY
  10. ZOMETA [Suspect]
     Indication: BONE DISORDER
     Dosage: 4 MG, UNK
     Route: 042
     Dates: start: 20100112, end: 20110317

REACTIONS (8)
  - NEOPLASM MALIGNANT [None]
  - METASTASES TO BONE [None]
  - BONE MARROW DISORDER [None]
  - NEOPLASM PROGRESSION [None]
  - FACIAL PARESIS [None]
  - PANCYTOPENIA [None]
  - OSTEOLYSIS [None]
  - GENERAL PHYSICAL HEALTH DETERIORATION [None]
